FAERS Safety Report 11124457 (Version 1)
Quarter: 2015Q2

REPORT INFORMATION
  Report Type: Spontaneous
  Country: US (occurrence: US)
  Receive Date: 20150520
  Receipt Date: 20150520
  Transmission Date: 20150821
  Serious: No
  Sender: FDA-Public Use
  Company Number: US-BIOGENIDEC-2015BI065379

PATIENT
  Age: 57 Year
  Sex: Female

DRUGS (18)
  1. ZANTAC [Concomitant]
     Active Substance: RANITIDINE HYDROCHLORIDE
  2. MONTELUKAST SODIUM. [Concomitant]
     Active Substance: MONTELUKAST SODIUM
  3. HYDROXYCHLOROQUINE [Concomitant]
     Active Substance: HYDROXYCHLOROQUINE
  4. BACLOFEN. [Concomitant]
     Active Substance: BACLOFEN
  5. ALIVE WOMENS 50+ [Concomitant]
  6. SYNTHROID [Concomitant]
     Active Substance: LEVOTHYROXINE SODIUM
  7. NIFEDIPINE ER [Concomitant]
     Active Substance: NIFEDIPINE
  8. FUROSEMIDE. [Concomitant]
     Active Substance: FUROSEMIDE
  9. AMITIZA [Concomitant]
     Active Substance: LUBIPROSTONE
  10. CYCLOBENZAPRINE HCL [Concomitant]
     Active Substance: CYCLOBENZAPRINE HYDROCHLORIDE
  11. BIOTIN [Concomitant]
     Active Substance: BIOTIN
  12. GABAPENTIN. [Concomitant]
     Active Substance: GABAPENTIN
  13. ATENOLOL. [Concomitant]
     Active Substance: ATENOLOL
  14. TOPAMAX [Concomitant]
     Active Substance: TOPIRAMATE
  15. OSPHENA [Concomitant]
     Active Substance: OSPEMIFENE
  16. CASCARA SAGRADA [Concomitant]
     Active Substance: FRANGULA PURSHIANA BARK
  17. TECFIDERA [Suspect]
     Active Substance: DIMETHYL FUMARATE
     Indication: MULTIPLE SCLEROSIS
     Route: 048
     Dates: start: 20120202
  18. VITAMIN D [Concomitant]
     Active Substance: CHOLECALCIFEROL

REACTIONS (2)
  - Dyspepsia [Unknown]
  - Chest discomfort [Unknown]
